FAERS Safety Report 9255579 (Version 2)
Quarter: 2013Q2

REPORT INFORMATION
  Report Type: Spontaneous
  Country: AR (occurrence: AR)
  Receive Date: 20130425
  Receipt Date: 20130501
  Transmission Date: 20140414
  Serious: Yes (Death, Hospitalization)
  Sender: FDA-Public Use
  Company Number: AR-BRISTOL-MYERS SQUIBB COMPANY-18802660

PATIENT
  Age: 69 Year
  Sex: Female

DRUGS (8)
  1. ABATACEPT [Suspect]
     Indication: RHEUMATOID ARTHRITIS
     Dosage: LAST INF:26-OCT-2012
     Route: 042
     Dates: start: 20120523
  2. METHOTREXATE [Concomitant]
     Route: 048
  3. FOLIC ACID [Concomitant]
     Route: 048
  4. MEPREDNISONE [Concomitant]
     Route: 048
  5. ENALAPRIL [Concomitant]
     Route: 048
  6. OMEPRAZOLE [Concomitant]
     Route: 048
  7. NAPROXEN [Concomitant]
     Route: 048
  8. LEVOTHYROXINE [Concomitant]
     Route: 048

REACTIONS (1)
  - Acute myocardial infarction [Fatal]
